FAERS Safety Report 9001301 (Version 2)
Quarter: 2013Q2

REPORT INFORMATION
  Report Type: Spontaneous
  Country: US (occurrence: US)
  Receive Date: 20130107
  Receipt Date: 20130610
  Transmission Date: 20140414
  Serious: Yes (Other)
  Sender: FDA-Public Use
  Company Number: PHHY2013US001351

PATIENT
  Age: 81 Year
  Sex: Female

DRUGS (5)
  1. ASCRIPTIN BUFFERED REG STRENGTH TABLETS [Suspect]
     Indication: HEADACHE
     Dosage: 1 DF, QD
     Route: 048
     Dates: start: 2003, end: 20130102
  2. ASCRIPTIN BUFFERED ARTHRITISPAIN CAPLETS [Suspect]
     Indication: HEADACHE
     Dosage: 1 DF, UNK
     Route: 048
  3. VITAMIN B [Concomitant]
  4. VITAMIN B12 [Concomitant]
  5. ATENOLOL [Concomitant]

REACTIONS (5)
  - Myocardial infarction [Recovered/Resolved]
  - Cellulitis [Recovered/Resolved]
  - Expired drug administered [Unknown]
  - Incorrect drug administration duration [Unknown]
  - Drug ineffective [Unknown]
